FAERS Safety Report 17515593 (Version 1)
Quarter: 2020Q1

REPORT INFORMATION
  Report Type: Spontaneous
  Country: US (occurrence: US)
  Receive Date: 20200309
  Receipt Date: 20200309
  Transmission Date: 20200409
  Serious: No
  Sender: FDA-Public Use
  Company Number: US-MYLANLABS-2020M1021854

PATIENT
  Age: 14 Year
  Sex: Female
  Weight: 73 kg

DRUGS (1)
  1. XULANE [Suspect]
     Active Substance: ETHINYL ESTRADIOL\NORELGESTROMIN
     Indication: CONTRACEPTION
     Dosage: UNK
     Route: 062
     Dates: start: 20200224

REACTIONS (5)
  - Application site irritation [Not Recovered/Not Resolved]
  - Application site pain [Not Recovered/Not Resolved]
  - Product adhesion issue [Unknown]
  - Application site pruritus [Not Recovered/Not Resolved]
  - Application site erythema [Not Recovered/Not Resolved]

NARRATIVE: CASE EVENT DATE: 202002
